FAERS Safety Report 12240977 (Version 1)
Quarter: 2016Q2

REPORT INFORMATION
  Report Type: Report from Study
  Country: US (occurrence: US)
  Receive Date: 20160406
  Receipt Date: 20160406
  Transmission Date: 20160815
  Serious: Yes (Other)
  Sender: FDA-Public Use
  Company Number: US-AMGEN-USASL2016039788

PATIENT
  Age: 64 Year
  Sex: Female

DRUGS (1)
  1. ENBREL [Suspect]
     Active Substance: ETANERCEPT
     Indication: RHEUMATOID ARTHRITIS
     Dosage: UNK UNK, QWK
     Route: 065
     Dates: start: 1999

REACTIONS (5)
  - Infection [Unknown]
  - Poor peripheral circulation [Unknown]
  - Sinusitis [Recovered/Resolved]
  - Limb operation [Unknown]
  - Stent placement [Unknown]

NARRATIVE: CASE EVENT DATE: 201505
